FAERS Safety Report 6263309-5 (Version None)
Quarter: 2009Q3

REPORT INFORMATION
  Report Type: 
  Country: None (occurrence: None)
  Receive Date: 20090710
  Receipt Date: 20090424
  Transmission Date: 20100115
  Serious: No
  Sender: FDA-Public Use
  Company Number: A0780574A

PATIENT
  Age: 60 Year
  Sex: Female

DRUGS (3)
  1. REQUIP XL [Suspect]
     Indication: PARKINSON'S DISEASE
     Dosage: 10MG PER DAY
     Route: 048
     Dates: start: 20090101
  2. SINEMET [Concomitant]
  3. AZILECT [Concomitant]

REACTIONS (1)
  - MUSCLE SPASMS [None]
